FAERS Safety Report 10038449 (Version 1)
Quarter: 2014Q1

REPORT INFORMATION
  Report Type: Spontaneous
  Country: US (occurrence: None)
  Receive Date: 20140306
  Receipt Date: 20140306
  Transmission Date: 20141002
  Serious: Yes (Other)
  Sender: FDA-Public Use
  Company Number: 163-21880-13073132

PATIENT
  Age: 58 Year
  Sex: Male
  Weight: 92 kg

DRUGS (3)
  1. REVLIMID (LENALIDOMIDE) (25 MILLIGRAM, CAPSULES) [Suspect]
     Indication: PLASMA CELL MYELOMA
     Dosage: 1 IN 1 D
     Route: 048
     Dates: start: 20130613, end: 20130704
  2. OXYCODONE [Concomitant]
  3. METOPROLOL [Concomitant]

REACTIONS (2)
  - Pancytopenia [None]
  - Fatigue [None]
